FAERS Safety Report 9476661 (Version 3)
Quarter: 2016Q1

REPORT INFORMATION
  Report Type: Spontaneous
  Country: US (occurrence: US)
  Receive Date: 20130826
  Receipt Date: 20160211
  Transmission Date: 20160526
  Serious: No
  Sender: FDA-Public Use
  Company Number: US-BRISTOL-MYERS SQUIBB COMPANY-18849687

PATIENT
  Sex: Female
  Weight: 58.96 kg

DRUGS (1)
  1. KENALOG-40 [Suspect]
     Active Substance: TRIAMCINOLONE ACETONIDE
     Indication: INFLUENZA
     Dosage: 40 MG, UNK
     Route: 030
     Dates: start: 20130122

REACTIONS (3)
  - Breast feeding [Unknown]
  - Injection site atrophy [Unknown]
  - Injection site bruising [Unknown]
